FAERS Safety Report 17021286 (Version 2)
Quarter: 2020Q3

REPORT INFORMATION
  Report Type: Spontaneous
  Country: US (occurrence: US)
  Receive Date: 20191112
  Receipt Date: 20200908
  Transmission Date: 20201102
  Serious: No
  Sender: FDA-Public Use
  Company Number: US-PFIZER INC-2019486674

PATIENT
  Age: 66 Year
  Sex: Female
  Weight: 66.67 kg

DRUGS (1)
  1. METHOTREXATE SODIUM. [Suspect]
     Active Substance: METHOTREXATE SODIUM
     Indication: RHEUMATOID ARTHRITIS
     Dosage: UNK
     Dates: end: 2019

REACTIONS (3)
  - Muscular weakness [Unknown]
  - Balance disorder [Unknown]
  - Drug ineffective [Unknown]
